FAERS Safety Report 23480921 (Version 1)
Quarter: 2024Q1

REPORT INFORMATION
  Report Type: Spontaneous
  Country: NP (occurrence: NP)
  Receive Date: 20240205
  Receipt Date: 20240205
  Transmission Date: 20240409
  Serious: Yes (Death, Life-Threatening, Hospitalization, Other)
  Sender: FDA-Public Use
  Company Number: NP-EPICPHARMA-NP-2024EPCLIT00231

PATIENT
  Age: 45 Year
  Sex: Male

DRUGS (7)
  1. HALOPERIDOL LACTATE [Suspect]
     Active Substance: HALOPERIDOL LACTATE
     Indication: Delirium
     Dosage: SINGLE DOSE
     Route: 042
  2. PIPERACILLIN [Concomitant]
     Active Substance: PIPERACILLIN
     Indication: Product used for unknown indication
     Route: 042
  3. TAZOBACTAM [Concomitant]
     Active Substance: TAZOBACTAM
     Indication: Product used for unknown indication
     Route: 042
  4. ACETAMINOPHEN [Concomitant]
     Active Substance: ACETAMINOPHEN
     Indication: Product used for unknown indication
     Route: 042
  5. PANTOPRAZOLE [Concomitant]
     Active Substance: PANTOPRAZOLE
     Indication: Product used for unknown indication
     Route: 042
  6. FENTANYL [Concomitant]
     Active Substance: FENTANYL\FENTANYL CITRATE
     Indication: Product used for unknown indication
     Dosage: 25 MICROGRAM SINGLE  DOSE
     Route: 042
  7. SODIUM LACTATE [Concomitant]
     Active Substance: SODIUM LACTATE
     Indication: Product used for unknown indication
     Route: 042

REACTIONS (2)
  - Cardiac arrest [Fatal]
  - Torsade de pointes [Recovered/Resolved]
